FAERS Safety Report 8014320-5 (Version None)
Quarter: 2011Q4

REPORT INFORMATION
  Report Type: 
  Country: None (occurrence: None)
  Receive Date: 20111229
  Receipt Date: 20111220
  Transmission Date: 20120403
  Serious: Yes (Death, Hospitalization)
  Sender: FDA-Public Use
  Company Number: LT-ACTELION-A-CH2011-58618

PATIENT
  Age: 30 Year
  Sex: Female

DRUGS (8)
  1. SILDENAFIL [Concomitant]
  2. DIGOXIN [Concomitant]
  3. WARFARIN SODIUM [Concomitant]
  4. AMIODARONE HCL [Concomitant]
  5. HEPARIN [Concomitant]
  6. DIURETICS [Concomitant]
  7. TRACLEER [Suspect]
     Indication: PULMONARY HYPERTENSION
     Route: 048
  8. OXYGEN [Concomitant]

REACTIONS (4)
  - SYNCOPE [None]
  - PULMONARY HYPERTENSION [None]
  - DYSPNOEA [None]
  - BRAIN NATRIURETIC PEPTIDE INCREASED [None]
